FAERS Safety Report 22519352 (Version 1)
Quarter: 2023Q2

REPORT INFORMATION
  Report Type: Spontaneous
  Country: US (occurrence: None)
  Receive Date: 20230602
  Receipt Date: 20230602
  Transmission Date: 20230722
  Serious: Yes (Other)
  Sender: FDA-Public Use
  Company Number: None

PATIENT
  Sex: Male
  Weight: 92.25 kg

DRUGS (4)
  1. ABILIFY [Suspect]
     Active Substance: ARIPIPRAZOLE
     Indication: Depression
  2. Abilify 10 mg [Concomitant]
  3. fluoxetine injection [Concomitant]
  4. VITAMIN D3 [Concomitant]
     Active Substance: CHOLECALCIFEROL

REACTIONS (15)
  - Hyperhidrosis [None]
  - Feeling hot [None]
  - Hypersensitivity [None]
  - Discomfort [None]
  - Suicidal ideation [None]
  - Impulse-control disorder [None]
  - Muscular weakness [None]
  - Muscular weakness [None]
  - Rheumatoid arthritis [None]
  - Dry mouth [None]
  - Pollakiuria [None]
  - Hypothalamo-pituitary disorder [None]
  - Decreased appetite [None]
  - Palpitations [None]
  - Bladder disorder [None]
